FAERS Safety Report 5821385-5 (Version None)
Quarter: 2008Q3

REPORT INFORMATION
  Report Type: 
  Country: None (occurrence: None)
  Receive Date: 20080722
  Receipt Date: 20080722
  Transmission Date: 20090109
  Serious: No
  Sender: FDA-Public Use
  Company Number: None

PATIENT
  Age: 55 Year
  Sex: Female
  Weight: 86.1834 kg

DRUGS (1)
  1. RECLAST [Suspect]
     Indication: ILL-DEFINED DISORDER
     Dosage: 1 YEARLY IV
     Route: 042
     Dates: start: 20080719, end: 20080721

REACTIONS (1)
  - INFLUENZA LIKE ILLNESS [None]
